FAERS Safety Report 20478783 (Version 1)
Quarter: 2022Q1

REPORT INFORMATION
  Report Type: Other
  Country: AU (occurrence: None)
  Receive Date: 20220216
  Receipt Date: 20220216
  Transmission Date: 20220423
  Serious: Yes (Other)
  Sender: FDA-Public Use
  Company Number: AU-ROCHE-3022655

PATIENT
  Age: 62 Year
  Sex: Male

DRUGS (4)
  1. MYCOPHENOLATE MOFETIL [Suspect]
     Active Substance: MYCOPHENOLATE MOFETIL
     Indication: Pyoderma gangrenosum
     Dosage: FOR SIX WEEKS
     Route: 065
  2. PREDNISONE [Suspect]
     Active Substance: PREDNISONE
     Indication: Pyoderma gangrenosum
     Dosage: DAILY FOR TWO WEEKS
     Route: 048
  3. HYDROXYCHLOROQUINE [Suspect]
     Active Substance: HYDROXYCHLOROQUINE
     Indication: Pyoderma gangrenosum
     Dosage: FOR SIX WEEKS
     Route: 065
  4. GENTAMICIN [Concomitant]
     Active Substance: GENTAMICIN
     Route: 042

REACTIONS (3)
  - Cutaneous T-cell lymphoma [Unknown]
  - Disease progression [Unknown]
  - Drug ineffective [Unknown]
